FAERS Safety Report 4591813-4 (Version None)
Quarter: 2005Q1

REPORT INFORMATION
  Report Type: 
  Country: None (occurrence: None)
  Receive Date: 20050222
  Receipt Date: 20050210
  Transmission Date: 20050727
  Serious: Yes (Hospitalization)
  Sender: FDA-Public Use
  Company Number: 05USA0055

PATIENT
  Age: 41 Year
  Sex: Male
  Weight: 126.1 kg

DRUGS (6)
  1. GLIADEL [Suspect]
     Indication: GLIOBLASTOMA MULTIFORME
     Dosage: 7.7 MG PER WAFERMAX 8
     Dates: start: 20040617
  2. O6 BENZYLGUANINE (ANTINEOPLASTIC AGENTS) (INJECTION FOR INFUSION) [Suspect]
     Indication: GLIOBLASTOMA MULTIFORME
     Dosage: 80 MG/M*2/5 DAYS INFUSION
     Dates: start: 20040617, end: 20040622
  3. DEPAKOTE [Concomitant]
  4. KEPPRA [Concomitant]
  5. DECADRON [Concomitant]
  6. ZANTAC [Concomitant]

REACTIONS (5)
  - ASCITES [None]
  - CSF CULTURE POSITIVE [None]
  - PULMONARY EMBOLISM [None]
  - SHUNT MALFUNCTION [None]
  - STAPHYLOCOCCAL INFECTION [None]
